FAERS Safety Report 23547670 (Version 1)
Quarter: 2024Q1

REPORT INFORMATION
  Report Type: Spontaneous
  Country: BR (occurrence: BR)
  Receive Date: 20240221
  Receipt Date: 20240221
  Transmission Date: 20240409
  Serious: Yes (Hospitalization, Other)
  Sender: FDA-Public Use
  Company Number: BR-SUN PHARMACEUTICAL INDUSTRIES LTD-2024R1-431955

PATIENT
  Age: 47 Year
  Sex: Male

DRUGS (2)
  1. METHYLPREDNISOLONE [Suspect]
     Active Substance: METHYLPREDNISOLONE
     Indication: Generalised oedema
     Dosage: UNK
     Route: 065
  2. PREDNISONE [Suspect]
     Active Substance: PREDNISONE
     Indication: Generalised oedema
     Dosage: 1 MILLIGRAM/KILOGRAM, QD
     Route: 048

REACTIONS (2)
  - COVID-19 [Unknown]
  - Focal segmental glomerulosclerosis [Unknown]
